FAERS Safety Report 6530249-3 (Version None)
Quarter: 2010Q1

REPORT INFORMATION
  Report Type: 
  Country: None (occurrence: None)
  Receive Date: 20100107
  Receipt Date: 20100104
  Transmission Date: 20100710
  Serious: Yes (Death)
  Sender: FDA-Public Use
  Company Number: US-PFIZER INC-2010001546

PATIENT
  Age: 57 Year
  Sex: Female

DRUGS (7)
  1. CELECOXIB [Suspect]
     Route: 048
  2. DILTIAZEM HCL [Suspect]
     Route: 048
  3. LORAZEPAM [Suspect]
     Route: 048
  4. METHYLPHENIDATE [Suspect]
     Route: 048
  5. DULOXETINE [Suspect]
     Route: 048
  6. ZOLPIDEM [Suspect]
     Route: 048
  7. WARFARIN [Suspect]
     Route: 048

REACTIONS (3)
  - CARDIAC ARREST [None]
  - COMPLETED SUICIDE [None]
  - RESPIRATORY ARREST [None]
